FAERS Safety Report 15732493 (Version 1)
Quarter: 2018Q4

REPORT INFORMATION
  Report Type: Spontaneous
  Country: US (occurrence: US)
  Receive Date: 20181217
  Receipt Date: 20181217
  Transmission Date: 20190205
  Serious: No
  Sender: FDA-Public Use
  Company Number: US-VIFOR (INTERNATIONAL) INC.-VIT-2018-10981

PATIENT
  Sex: Female

DRUGS (15)
  1. LIPITOR [Concomitant]
     Active Substance: ATORVASTATIN CALCIUM
  2. FOLIC ACID. [Concomitant]
     Active Substance: FOLIC ACID
  3. FEMARA [Concomitant]
     Active Substance: LETROZOLE
  4. ASPIRIN ADULT LOW DOSE [Concomitant]
     Active Substance: ASPIRIN
  5. CALCITRIOL. [Concomitant]
     Active Substance: CALCITRIOL
  6. LASIX [Concomitant]
     Active Substance: FUROSEMIDE
  7. VELTASSA [Suspect]
     Active Substance: PATIROMER
     Indication: HYPERKALAEMIA
     Route: 048
     Dates: start: 20160909
  8. VITAMIN D3 [Concomitant]
     Active Substance: CHOLECALCIFEROL
  9. NEPHRO VITE RX [Concomitant]
     Active Substance: ASCORBIC ACID\BIOTIN\CALCIUM PANTOTHENATE\CYANOCOBALAMIN\FOLIC ACID\NIACINAMIDE\PYRIDOXINE HYDROCHLORIDE\RIBOFLAVIN\THIAMINE MONONITRATE
  10. MULTIVITAMINS [Concomitant]
     Active Substance: VITAMINS
  11. BETHANECHOL CHLORIDE. [Concomitant]
     Active Substance: BETHANECHOL CHLORIDE
  12. SERTRALINE HCL [Concomitant]
     Active Substance: SERTRALINE HYDROCHLORIDE
  13. CARDURA [Concomitant]
     Active Substance: DOXAZOSIN MESYLATE
  14. TYLENOL [Concomitant]
     Active Substance: ACETAMINOPHEN
  15. SYNTHROID [Concomitant]
     Active Substance: LEVOTHYROXINE SODIUM

REACTIONS (1)
  - Blood potassium increased [Unknown]
